FAERS Safety Report 12527517 (Version 2)
Quarter: 2016Q4

REPORT INFORMATION
  Report Type: Report from Study
  Country: None (occurrence: US)
  Receive Date: 20160705
  Receipt Date: 20161108
  Transmission Date: 20170207
  Serious: Yes (Death, Hospitalization)
  Sender: FDA-Public Use
  Company Number: US-ABBVIE-16K-163-1667532-00

PATIENT
  Age: 52 Year
  Sex: Female

DRUGS (1)
  1. HUMIRA [Suspect]
     Active Substance: ADALIMUMAB
     Indication: PSORIASIS
     Route: 058
     Dates: start: 201504, end: 201604

REACTIONS (5)
  - Lung infiltration [Unknown]
  - Hypovolaemia [Unknown]
  - Encephalopathy [Unknown]
  - Renal failure [Unknown]
  - Haemorrhoidal haemorrhage [Fatal]

NARRATIVE: CASE EVENT DATE: 201603
